FAERS Safety Report 12978923 (Version 8)
Quarter: 2017Q1

REPORT INFORMATION
  Report Type: Spontaneous
  Country: FR (occurrence: FR)
  Receive Date: 20161128
  Receipt Date: 20170123
  Transmission Date: 20170428
  Serious: Yes (Disabling, Other)
  Sender: FDA-Public Use
  Company Number: FR-CELGENEUS-FRA-2016114216

PATIENT
  Age: 67 Year
  Sex: Female

DRUGS (4)
  1. OMEPRAZOLE. [Concomitant]
     Active Substance: OMEPRAZOLE
     Indication: DYSPEPSIA
     Route: 065
  2. OINTMENT [Concomitant]
     Active Substance: UNSPECIFIED INGREDIENT
     Indication: PSORIASIS
     Route: 061
  3. OTEZLA [Suspect]
     Active Substance: APREMILAST
     Indication: PSORIASIS
     Dosage: 30 MG
     Route: 048
     Dates: start: 20161106
  4. ATACAND [Concomitant]
     Active Substance: CANDESARTAN CILEXETIL
     Indication: HYPERTENSION
     Route: 065

REACTIONS (13)
  - Colitis [Unknown]
  - Joint ankylosis [Unknown]
  - Psoriasis [Unknown]
  - Bronchitis [Recovered/Resolved]
  - Immunosuppression [Unknown]
  - Frequent bowel movements [Unknown]
  - Asthenia [Unknown]
  - Nasopharyngitis [Recovered/Resolved]
  - Abnormal faeces [Not Recovered/Not Resolved]
  - Abdominal pain [Not Recovered/Not Resolved]
  - Abnormal faeces [Unknown]
  - Nasopharyngitis [Unknown]
  - Influenza [Recovered/Resolved]

NARRATIVE: CASE EVENT DATE: 20161119
